FAERS Safety Report 4561114-9 (Version None)
Quarter: 2005Q1

REPORT INFORMATION
  Report Type: 
  Country: None (occurrence: None)
  Receive Date: 20050121
  Receipt Date: 20050110
  Transmission Date: 20050727
  Serious: Yes (Death, Hospitalization)
  Sender: FDA-Public Use
  Company Number: US-2005-000270

PATIENT
  Age: 72 Year
  Sex: Female

DRUGS (9)
  1. BETASERON [Suspect]
     Indication: MULTIPLE SCLEROSIS
     Dates: start: 19940706, end: 20040804
  2. BACLOFEN [Concomitant]
  3. LACTULOSE [Concomitant]
  4. PAXIL [Concomitant]
  5. DEPAKOTE [Concomitant]
  6. ACETYLSALICYLIC ACID SRT [Concomitant]
  7. DITROPAN [Concomitant]
  8. PREVACID [Concomitant]
  9. SYNTHROID [Concomitant]

REACTIONS (2)
  - RENAL FAILURE [None]
  - SEPSIS [None]
